FAERS Safety Report 15438328 (Version 1)
Quarter: 2018Q3

REPORT INFORMATION
  Report Type: Spontaneous
  Country: US (occurrence: US)
  Receive Date: 20180928
  Receipt Date: 20180928
  Transmission Date: 20181010
  Serious: No
  Sender: FDA-Public Use
  Company Number: US-BION-006859

PATIENT
  Age: 34 Year
  Sex: Female

DRUGS (4)
  1. ANTI?DIARRHEAL LOPERAMIDE HCL [Suspect]
     Active Substance: LOPERAMIDE HYDROCHLORIDE
     Indication: DIARRHOEA
     Route: 048
  2. WARFARIN [Concomitant]
     Active Substance: WARFARIN
  3. VITAMINS NOS [Concomitant]
     Active Substance: VITAMINS
  4. DIGOXIN. [Concomitant]
     Active Substance: DIGOXIN

REACTIONS (5)
  - Cough [Recovering/Resolving]
  - Incorrect dose administered [Not Recovered/Not Resolved]
  - Chest pain [Recovering/Resolving]
  - Foreign body in respiratory tract [Unknown]
  - Throat irritation [Recovering/Resolving]

NARRATIVE: CASE EVENT DATE: 20171220
